FAERS Safety Report 25452222 (Version 1)
Quarter: 2025Q2

REPORT INFORMATION
  Report Type: Spontaneous
  Country: ES (occurrence: ES)
  Receive Date: 20250618
  Receipt Date: 20250618
  Transmission Date: 20250716
  Serious: Yes (Hospitalization)
  Sender: EISAI
  Company Number: None

PATIENT
  Age: 58 Year
  Sex: Female

DRUGS (1)
  1. LENVATINIB [Suspect]
     Active Substance: LENVATINIB
     Indication: Endometrial adenocarcinoma

REACTIONS (2)
  - Ketoacidosis [Unknown]
  - Off label use [Unknown]

NARRATIVE: CASE EVENT DATE: 20250603
